FAERS Safety Report 21567692 (Version 1)
Quarter: 2022Q4

REPORT INFORMATION
  Report Type: Spontaneous
  Country: FR (occurrence: FR)
  Receive Date: 20221108
  Receipt Date: 20221108
  Transmission Date: 20230113
  Serious: Yes (Other)
  Sender: FDA-Public Use
  Company Number: None

PATIENT

DRUGS (1)
  1. NICOTINELL [Suspect]
     Active Substance: NICOTINE
     Indication: Ex-tobacco user
     Dosage: 16 MG (1 TO 8 CP/D)
     Route: 048
     Dates: start: 20211001, end: 20211010

REACTIONS (5)
  - Supraventricular extrasystoles [Recovered/Resolved]
  - Aphthous ulcer [Recovered/Resolved]
  - Headache [Recovered/Resolved]
  - Paraesthesia [Recovered/Resolved]
  - Malaise [Recovered/Resolved]

NARRATIVE: CASE EVENT DATE: 20211001
